FAERS Safety Report 4337437-5 (Version None)
Quarter: 2004Q2

REPORT INFORMATION
  Report Type: 
  Country: None (occurrence: None)
  Receive Date: 20040408
  Receipt Date: 20040107
  Transmission Date: 20050107
  Serious: Yes (Hospitalization)
  Sender: FDA-Public Use
  Company Number: 230021K04USA

PATIENT
  Age: 25 Year
  Sex: Female

DRUGS (2)
  1. REBIF [Suspect]
     Indication: MULTIPLE SCLEROSIS
     Dates: start: 20030314
  2. NOVANTRONE [Suspect]
     Indication: MULTIPLE SCLEROSIS

REACTIONS (1)
  - MULTIPLE SCLEROSIS [None]
